FAERS Safety Report 17366193 (Version 2)
Quarter: 2020Q1

REPORT INFORMATION
  Report Type: Spontaneous
  Country: US (occurrence: US)
  Receive Date: 20200204
  Receipt Date: 20200316
  Transmission Date: 20200409
  Serious: No
  Sender: FDA-Public Use
  Company Number: US-PFIZER INC-2020043583

PATIENT
  Age: 69 Year
  Sex: Male

DRUGS (3)
  1. EUCRISA [Suspect]
     Active Substance: CRISABOROLE
     Indication: FUNGAL SKIN INFECTION
     Dosage: UNK, 2X/DAY
     Route: 061
     Dates: start: 20200124
  2. CASTELLANI PAINT [Concomitant]
     Active Substance: PHENOL
     Dosage: UNK
     Dates: start: 20200124
  3. EUCRISA [Suspect]
     Active Substance: CRISABOROLE
     Dosage: 20 MG, 2X/DAY
     Route: 061
     Dates: start: 20200124

REACTIONS (4)
  - Drug effective for unapproved indication [Unknown]
  - Product use in unapproved indication [Unknown]
  - Off label use [Unknown]
  - Rash [Recovered/Resolved]

NARRATIVE: CASE EVENT DATE: 20200124
